FAERS Safety Report 5203527-8 (Version None)
Quarter: 2007Q1

REPORT INFORMATION
  Report Type: 
  Country: None (occurrence: None)
  Receive Date: 20070105
  Receipt Date: 20061225
  Transmission Date: 20070707
  Serious: Yes (Hospitalization, Disabling, Other)
  Sender: FDA-Public Use
  Company Number: PHHO2006JP16838

PATIENT
  Age: 91 Year
  Sex: Male

DRUGS (1)
  1. VERTEPORFIN [Suspect]
     Indication: MACULAR DEGENERATION
     Dosage: 5.4 ML
     Route: 042
     Dates: start: 20050107, end: 20050107

REACTIONS (5)
  - ASTHENOPIA [None]
  - BLINDNESS [None]
  - CONDITION AGGRAVATED [None]
  - GLAUCOMA [None]
  - VITREOUS HAEMORRHAGE [None]
